FAERS Safety Report 7643730-0 (Version None)
Quarter: 2011Q3

REPORT INFORMATION
  Report Type: 
  Country: None (occurrence: None)
  Receive Date: 20110729
  Receipt Date: 20110722
  Transmission Date: 20111222
  Serious: Yes (Other)
  Sender: FDA-Public Use
  Company Number: US-ABBOTT-11P-163-0841481-00

PATIENT
  Sex: Female
  Weight: 77.18 kg

DRUGS (24)
  1. HUMIRA [Suspect]
     Indication: RHEUMATOID ARTHRITIS
     Route: 058
  2. EPINEPHRINE [Suspect]
     Indication: ADVERSE DRUG REACTION
     Dates: start: 20070801, end: 20070801
  3. PRENATAL VITAMINS [Concomitant]
     Indication: PRODUCT USED FOR UNKNOWN INDICATION
     Dosage: 2 PRENATAL VITAMINS DAILY
  4. PREDNISONE [Concomitant]
     Indication: PRODUCT USED FOR UNKNOWN INDICATION
     Dosage: DAILY
     Route: 048
  5. RITUXAN [Suspect]
     Indication: RHEUMATOID ARTHRITIS
     Dates: start: 20070801, end: 20070801
  6. PRILOSEC [Concomitant]
     Indication: PRODUCT USED FOR UNKNOWN INDICATION
     Route: 048
  7. LYRICA [Concomitant]
     Indication: PRODUCT USED FOR UNKNOWN INDICATION
     Dosage: DAILY
     Route: 048
  8. UNKNOWN ANTIBIOTIC [Suspect]
     Indication: KNEE OPERATION
     Dates: start: 20050501, end: 20050501
  9. MULTI-VITAMIN [Concomitant]
     Indication: PRODUCT USED FOR UNKNOWN INDICATION
     Dosage: DAILY
     Route: 048
  10. PLAQUENIL [Concomitant]
     Indication: RHEUMATOID ARTHRITIS
     Route: 048
  11. VITAMIN B-12 [Concomitant]
     Indication: PRODUCT USED FOR UNKNOWN INDICATION
     Dosage: SHOT MONTHLY
  12. HYDROCODONE BITARTRATE [Concomitant]
     Indication: PRODUCT USED FOR UNKNOWN INDICATION
     Dosage: 10/650MG FOUR TIMES DAILY
     Route: 048
  13. METHADONE HYDROCHLORIDE [Concomitant]
     Indication: PRODUCT USED FOR UNKNOWN INDICATION
     Route: 048
  14. UNKNOWN ANTIBIOTIC [Suspect]
     Indication: POSTOPERATIVE CARE
     Dates: start: 20040301, end: 20040301
  15. FOSAMAX [Concomitant]
     Indication: PRODUCT USED FOR UNKNOWN INDICATION
     Dosage: DAILY
     Route: 048
  16. TOPROL-XL [Concomitant]
     Indication: PRODUCT USED FOR UNKNOWN INDICATION
     Dosage: DAILY
     Route: 048
  17. ALLEGRA [Concomitant]
     Indication: PRODUCT USED FOR UNKNOWN INDICATION
     Dosage: DAILY
     Route: 048
  18. ASPIRIN [Concomitant]
     Indication: PRODUCT USED FOR UNKNOWN INDICATION
     Dosage: DAILY
     Route: 048
  19. FLORINEF [Concomitant]
     Indication: PRODUCT USED FOR UNKNOWN INDICATION
     Dosage: DAILY
     Route: 048
  20. FOLIC ACID [Concomitant]
     Indication: PRODUCT USED FOR UNKNOWN INDICATION
  21. SAVELLA [Concomitant]
     Indication: PRODUCT USED FOR UNKNOWN INDICATION
     Dosage: DAILY
     Route: 048
  22. KLONOPIN [Concomitant]
     Indication: PRODUCT USED FOR UNKNOWN INDICATION
     Dosage: AT BEDTIME
  23. DIM [Concomitant]
     Indication: HOT FLUSH
     Dosage: HERBAL SUPPLEMENT
  24. METHOTREXATE [Concomitant]
     Indication: PRODUCT USED FOR UNKNOWN INDICATION
     Dosage: EVERY MONDAY

REACTIONS (21)
  - ARTHRALGIA [None]
  - DISBACTERIOSIS [None]
  - JOINT SWELLING [None]
  - IMMUNE SYSTEM DISORDER [None]
  - DIARRHOEA [None]
  - ABDOMINAL PAIN [None]
  - OVARIAN MASS [None]
  - DRUG INEFFECTIVE [None]
  - PAIN [None]
  - ARTHRITIS [None]
  - RENAL CANCER [None]
  - MYOCARDIAL INFARCTION [None]
  - FUNGAL INFECTION [None]
  - VOMITING [None]
  - THYROID NEOPLASM [None]
  - OEDEMA PERIPHERAL [None]
  - JOINT CONTRACTURE [None]
  - PROCEDURAL COMPLICATION [None]
  - SPLENIC HAEMORRHAGE [None]
  - OVARIAN CANCER [None]
  - UNEVALUABLE EVENT [None]
